FAERS Safety Report 4359975-1 (Version None)
Quarter: 2004Q2

REPORT INFORMATION
  Report Type: 
  Country: None (occurrence: None)
  Receive Date: 20040518
  Receipt Date: 20040518
  Transmission Date: 20050107
  Serious: Yes (Other)
  Sender: FDA-Public Use
  Company Number: None

PATIENT

DRUGS (2)
  1. BICILLIN C-R [Suspect]
     Indication: SYPHILIS
     Dosage: 2.4 M U X 1 INTRAMUSCULAR
     Route: 030
     Dates: start: 19990101, end: 20040304
  2. BICILLIN L-A [Suspect]
     Indication: SYPHILIS
     Dosage: 2.4 M U X 3 INTRAMUSCULAR
     Route: 030
     Dates: start: 19990101, end: 20040304

REACTIONS (1)
  - MEDICATION ERROR [None]
